FAERS Safety Report 21674315 (Version 2)
Quarter: 2022Q4

REPORT INFORMATION
  Report Type: Spontaneous
  Country: JP (occurrence: JP)
  Receive Date: 20221202
  Receipt Date: 20221212
  Transmission Date: 20230113
  Serious: Yes (Other)
  Sender: FDA-Public Use
  Company Number: JP-ONO-2022JP032125

PATIENT
  Age: 7 Decade
  Sex: Female

DRUGS (2)
  1. OPDIVO [Suspect]
     Active Substance: NIVOLUMAB
     Indication: Metastatic renal cell carcinoma
     Route: 041
  2. YERVOY [Suspect]
     Active Substance: IPILIMUMAB
     Indication: Metastatic renal cell carcinoma
     Route: 041

REACTIONS (4)
  - Toxic encephalopathy [Recovering/Resolving]
  - Acute kidney injury [Recovering/Resolving]
  - Hyperintensity in brain deep nuclei [Recovering/Resolving]
  - Visual acuity reduced [Recovering/Resolving]
